FAERS Safety Report 9897423 (Version 2)
Quarter: 2015Q2

REPORT INFORMATION
  Report Type: Report from Study
  Country: US (occurrence: US)
  Receive Date: 20140214
  Receipt Date: 20150413
  Transmission Date: 20150821
  Serious: Yes (Death, Hospitalization, Other)
  Sender: FDA-Public Use
  Company Number: US-ROCHE-1326960

PATIENT
  Sex: Female
  Weight: 66.28 kg

DRUGS (15)
  1. HERCEPTIN [Suspect]
     Active Substance: TRASTUZUMAB
     Route: 065
     Dates: start: 200904, end: 200911
  2. NAVELBINE [Concomitant]
     Active Substance: VINORELBINE TARTRATE
     Indication: BREAST CANCER METASTATIC
  3. TYKERB [Concomitant]
     Active Substance: LAPATINIB DITOSYLATE
     Indication: BREAST CANCER METASTATIC
  4. HERCEPTIN [Suspect]
     Active Substance: TRASTUZUMAB
     Indication: BREAST CANCER METASTATIC
     Route: 065
     Dates: end: 200703
  5. XELODA [Suspect]
     Active Substance: CAPECITABINE
     Route: 065
     Dates: start: 200904, end: 200907
  6. XELODA [Suspect]
     Active Substance: CAPECITABINE
     Indication: BREAST CANCER METASTATIC
     Route: 065
     Dates: start: 20100111, end: 201003
  7. XELODA [Suspect]
     Active Substance: CAPECITABINE
     Route: 065
     Dates: start: 20100625
  8. CYTOXAN [Concomitant]
     Active Substance: CYCLOPHOSPHAMIDE
  9. AVASTIN [Suspect]
     Active Substance: BEVACIZUMAB
     Indication: BREAST CANCER METASTATIC
     Route: 042
  10. ERIBULIN [Concomitant]
     Active Substance: ERIBULIN
     Indication: BREAST CANCER METASTATIC
  11. GEMZAR [Concomitant]
     Active Substance: GEMCITABINE HYDROCHLORIDE
     Indication: BREAST CANCER METASTATIC
  12. TAXOL [Concomitant]
     Active Substance: PACLITAXEL
     Indication: BREAST CANCER METASTATIC
  13. HERCEPTIN [Suspect]
     Active Substance: TRASTUZUMAB
     Route: 065
     Dates: start: 20100111, end: 201003
  14. DEXAMETHASONE SODIUM PHOSPHATE. [Concomitant]
     Active Substance: DEXAMETHASONE SODIUM PHOSPHATE
     Indication: BREAST CANCER METASTATIC
     Route: 042
     Dates: start: 20110415
  15. EPIRUBICIN [Concomitant]
     Active Substance: EPIRUBICIN

REACTIONS (18)
  - Bacteraemia [Unknown]
  - Haemorrhoids [Unknown]
  - Skin exfoliation [Unknown]
  - Mood swings [Unknown]
  - Off label use [Unknown]
  - Metastases to central nervous system [Unknown]
  - Rash [Unknown]
  - Ejection fraction decreased [Unknown]
  - Exfoliative rash [Unknown]
  - Suicidal ideation [Unknown]
  - Disease progression [Unknown]
  - Asthenia [Unknown]
  - Abdominal pain upper [Unknown]
  - Tinea pedis [Unknown]
  - Death [Fatal]
  - Klebsiella infection [Unknown]
  - Depression [Unknown]
  - Drug intolerance [Unknown]
